FAERS Safety Report 19674441 (Version 1)
Quarter: 2021Q3

REPORT INFORMATION
  Report Type: Spontaneous
  Country: AU (occurrence: US)
  Receive Date: 20210809
  Receipt Date: 20210809
  Transmission Date: 20211014
  Serious: No
  Sender: FDA-Public Use
  Company Number: AU-ALKEM LABORATORIES LIMITED-US-ALKEM-2020-05541

PATIENT

DRUGS (3)
  1. MOLIBRESIB. [Suspect]
     Active Substance: MOLIBRESIB
     Indication: PRODUCT USED FOR UNKNOWN INDICATION
     Dosage: UNK (5 MG)
     Route: 048
  2. ITRACONAZOLE. [Suspect]
     Active Substance: ITRACONAZOLE
     Indication: PRODUCT USED FOR UNKNOWN INDICATION
     Dosage: 200 MILLIGRAM, BID(ON DAY 1)
     Route: 065
  3. ITRACONAZOLE. [Suspect]
     Active Substance: ITRACONAZOLE
     Dosage: 200 MILLIGRAM, QD(ON DAY 2)
     Route: 065

REACTIONS (1)
  - Drug interaction [Unknown]
